FAERS Safety Report 7477548-9 (Version None)
Quarter: 2011Q2

REPORT INFORMATION
  Report Type: 
  Country: None (occurrence: None)
  Receive Date: 20110511
  Receipt Date: 20110511
  Transmission Date: 20111010
  Serious: Yes (Other)
  Sender: FDA-Public Use
  Company Number: None

PATIENT
  Age: 52 Year
  Sex: Male
  Weight: 129 kg

DRUGS (16)
  1. REGULAR INSULIN [Concomitant]
  2. PAROXETINE HCL [Concomitant]
  3. OXAZEPAM [Concomitant]
  4. ZOSYN [Concomitant]
  5. INSULIN NPH/REG [Concomitant]
  6. LORTADINE [Concomitant]
  7. BUPROPION HCL [Concomitant]
  8. LISINOPRIL [Concomitant]
  9. VANCOMYCIN [Suspect]
     Indication: OSTEOMYELITIS
     Dosage: 125 GRAM Q12 HOURS IV PIGGYBACK
     Route: 042
     Dates: start: 20110219, end: 20110221
  10. AMITRIPTYLINE HCL [Concomitant]
  11. AMLODIPINE [Concomitant]
  12. CEFTRIAXONE [Concomitant]
  13. MIDAZOLAM HCL [Concomitant]
  14. HEPARIN [Concomitant]
  15. POTASSIUM CHLORIDE [Concomitant]
  16. VANCOMYCIN [Suspect]
     Indication: OSTEOMYELITIS
     Dosage: 1 GRAM Q12 HOURS IV PIGGYBACK
     Route: 042
     Dates: start: 20110217, end: 20110218

REACTIONS (1)
  - RENAL FAILURE ACUTE [None]
